FAERS Safety Report 6555873-3 (Version None)
Quarter: 2010Q1

REPORT INFORMATION
  Report Type: 
  Country: None (occurrence: None)
  Receive Date: 20100125
  Receipt Date: 20100119
  Transmission Date: 20100710
  Serious: Yes (Death, Other)
  Sender: FDA-Public Use
  Company Number: 2009SP039370

PATIENT
  Age: 69 Year
  Sex: Male

DRUGS (3)
  1. NOXAFIL [Suspect]
     Indication: CHRONIC LYMPHOCYTIC LEUKAEMIA
     Dosage: 400 MG; QD; PO
     Route: 048
     Dates: start: 20090924, end: 20090929
  2. TARGOCID [Concomitant]
  3. CIPRO [Concomitant]

REACTIONS (3)
  - BRONCHOPNEUMONIA [None]
  - CANDIDIASIS [None]
  - CYTOLYTIC HEPATITIS [None]
